FAERS Safety Report 18229170 (Version 7)
Quarter: 2020Q3

REPORT INFORMATION
  Report Type: Spontaneous
  Country: US (occurrence: US)
  Receive Date: 20200903
  Receipt Date: 20200925
  Transmission Date: 20201103
  Serious: No
  Sender: FDA-Public Use
  Company Number: US-PFIZER INC-2019345374

PATIENT
  Age: 56 Year
  Sex: Female
  Weight: 50.8 kg

DRUGS (2)
  1. DETROL LA [Suspect]
     Active Substance: TOLTERODINE TARTRATE
     Indication: BLADDER DISORDER
     Dosage: 2 MG, ONCE DAILY
     Route: 048
  2. DETROL LA [Suspect]
     Active Substance: TOLTERODINE TARTRATE
     Indication: POLLAKIURIA
     Dosage: 2 MG, TWICE DAILY
     Route: 048

REACTIONS (3)
  - Off label use [Unknown]
  - Gait disturbance [Unknown]
  - Discomfort [Unknown]
